FAERS Safety Report 7523343-1 (Version None)
Quarter: 2011Q2

REPORT INFORMATION
  Report Type: 
  Country: None (occurrence: None)
  Receive Date: 20110603
  Receipt Date: 20110525
  Transmission Date: 20111010
  Serious: Yes (Other)
  Sender: FDA-Public Use
  Company Number: A0929138A

PATIENT
  Age: 67 Year
  Sex: Female

DRUGS (6)
  1. ADVAIR DISKUS 100/50 [Suspect]
     Indication: CHRONIC OBSTRUCTIVE PULMONARY DISEASE
     Dosage: 1PUFF TWICE PER DAY
     Route: 055
     Dates: start: 20080101
  2. DILTIAZEM [Concomitant]
  3. ALBUTEROL SULFATE AUTOHALER [Concomitant]
  4. SPIRIVA [Concomitant]
  5. SPIRONOLACTONE [Concomitant]
  6. GUAIFENESIN [Concomitant]

REACTIONS (2)
  - CATARACT [None]
  - DRY EYE [None]
